FAERS Safety Report 7075816-6 (Version None)
Quarter: 2010Q4

REPORT INFORMATION
  Report Type: 
  Country: None (occurrence: None)
  Receive Date: 20101101
  Receipt Date: 20101020
  Transmission Date: 20110411
  Serious: No
  Sender: FDA-Public Use
  Company Number: US-BIOGENIDEC-2010BI026740

PATIENT
  Age: 52 Year
  Sex: Female

DRUGS (1)
  1. TYSABRI [Suspect]
     Indication: MULTIPLE SCLEROSIS
     Route: 042
     Dates: start: 20100303, end: 20100826

REACTIONS (7)
  - ABDOMINAL DISCOMFORT [None]
  - ASTHENIA [None]
  - DIZZINESS [None]
  - FEELING ABNORMAL [None]
  - HYPOTENSION [None]
  - NAUSEA [None]
  - VOMITING [None]
